FAERS Safety Report 7111136-9 (Version None)
Quarter: 2010Q4

REPORT INFORMATION
  Report Type: 
  Country: None (occurrence: None)
  Receive Date: 20101118
  Receipt Date: 20091106
  Transmission Date: 20110411
  Serious: No
  Sender: FDA-Public Use
  Company Number: US-TEVA-214536USA

PATIENT
  Age: 44 Year
  Sex: Female

DRUGS (3)
  1. ALBUTEROL SULFATE AUTOHALER [Suspect]
     Route: 055
  2. VICODIN [Interacting]
     Indication: HEADACHE
     Dosage: 5MG/500MG 1-2 TABLETS DAILY
     Route: 048
     Dates: start: 20091026
  3. AZITHROMYCIN [Interacting]
     Route: 048

REACTIONS (2)
  - DRUG INTERACTION [None]
  - SKIN DISCOLOURATION [None]
